FAERS Safety Report 14662837 (Version 1)
Quarter: 2018Q1

REPORT INFORMATION
  Report Type: Spontaneous
  Country: IN (occurrence: IN)
  Receive Date: 20180321
  Receipt Date: 20180321
  Transmission Date: 20180509
  Serious: No
  Sender: FDA-Public Use
  Company Number: IN-LUPIN PHARMACEUTICALS INC.-2017-03368

PATIENT
  Age: 23 Year
  Sex: Female

DRUGS (3)
  1. ZINCOA [Concomitant]
     Indication: BENIGN BREAST NEOPLASM
     Dosage: 1 DF, QD
     Dates: start: 20170622
  2. SN-15 [Concomitant]
     Active Substance: NIMESULIDE\SERRAPEPTASE
     Indication: BREAST PAIN
     Dosage: 1 DF, BID
     Dates: start: 20170622
  3. LUPICEF [Suspect]
     Active Substance: CEFIXIME
     Indication: PROPHYLAXIS
     Dosage: 1 DF, BID
     Route: 048
     Dates: start: 20170622

REACTIONS (3)
  - Abdominal pain upper [Not Recovered/Not Resolved]
  - Vomiting [Recovered/Resolved]
  - Anxiety [Not Recovered/Not Resolved]

NARRATIVE: CASE EVENT DATE: 20170622
